FAERS Safety Report 25085966 (Version 2)
Quarter: 2025Q2

REPORT INFORMATION
  Report Type: Spontaneous
  Country: US (occurrence: US)
  Receive Date: 20250317
  Receipt Date: 20250406
  Transmission Date: 20250716
  Serious: No
  Sender: BAUSCH AND LOMB
  Company Number: US-BAUSCHBL-2025BNL004281

PATIENT
  Sex: Female

DRUGS (1)
  1. ALAWAY [Suspect]
     Active Substance: KETOTIFEN FUMARATE
     Indication: Product used for unknown indication
     Route: 065

REACTIONS (3)
  - Ocular discomfort [Unknown]
  - Drug ineffective [Unknown]
  - Product quality issue [Unknown]
